FAERS Safety Report 7544155-9 (Version None)
Quarter: 2011Q2

REPORT INFORMATION
  Report Type: 
  Country: None (occurrence: None)
  Receive Date: 20110613
  Receipt Date: 20060330
  Transmission Date: 20111010
  Serious: Yes (Other)
  Sender: FDA-Public Use
  Company Number: PHHO2005NL06646

PATIENT

DRUGS (5)
  1. AMARYL [Concomitant]
  2. LESCOL [Suspect]
     Route: 048
     Dates: start: 20020403
  3. ASCAL [Concomitant]
  4. GLUCOPHAGE [Concomitant]
  5. HYZAAR [Concomitant]

REACTIONS (2)
  - DIABETES MELLITUS [None]
  - CEREBROVASCULAR ACCIDENT [None]
